FAERS Safety Report 7405891-8 (Version None)
Quarter: 2011Q2

REPORT INFORMATION
  Report Type: 
  Country: None (occurrence: None)
  Receive Date: 20110411
  Receipt Date: 20110328
  Transmission Date: 20111010
  Serious: Yes (Hospitalization)
  Sender: FDA-Public Use
  Company Number: JP-JNJFOC-20110312766

PATIENT
  Age: 55 Year
  Sex: Male
  Weight: 80 kg

DRUGS (8)
  1. REMICADE [Suspect]
     Route: 042
  2. BLOPRESS [Concomitant]
     Indication: ANKYLOSING SPONDYLITIS
     Route: 048
  3. GASTER D [Concomitant]
     Indication: ANKYLOSING SPONDYLITIS
     Route: 048
  4. REMICADE [Suspect]
     Indication: ANKYLOSING SPONDYLITIS
     Route: 042
  5. AMLODIN [Concomitant]
     Indication: ANKYLOSING SPONDYLITIS
     Route: 048
  6. VOLTAREN [Concomitant]
     Indication: ANKYLOSING SPONDYLITIS
     Route: 048
  7. PREDONINE [Concomitant]
     Indication: ANKYLOSING SPONDYLITIS
     Route: 048
  8. AZULFIDINE [Concomitant]
     Indication: ANKYLOSING SPONDYLITIS
     Route: 048

REACTIONS (2)
  - PYREXIA [None]
  - JOINT SWELLING [None]
